FAERS Safety Report 8851112 (Version 1)
Quarter: 2012Q4

REPORT INFORMATION
  Report Type: 
  Country: US (occurrence: US)
  Receive Date: 20121019
  Receipt Date: 20121019
  Transmission Date: 20130627
  Serious: Yes (Hospitalization)
  Sender: FDA-Public Use
  Company Number: US-VIROPHARMA INCORPORATED-20121015CINRY3501

PATIENT
  Age: 71 None
  Sex: Male

DRUGS (11)
  1. CINRYZE (C1 ESTERASE INHIBITOR (HUMAN)) [Suspect]
     Indication: HEREDITARY ANGIOEDEMA
     Dates: start: 201110
  2. PREDNISONE [Concomitant]
     Indication: HEREDITARY ANGIOEDEMA
     Dosage: unknown
     Route: 065
     Dates: start: 1975
  3. TYLENOL [Concomitant]
     Indication: PRODUCT USED FOR UNKNOWN INDICATION
     Dosage: unknown
     Route: 065
  4. BABY ASPIRIN [Concomitant]
     Indication: CARDIAC DISORDER
     Dosage: unknown
     Route: 065
  5. FISH OIL [Concomitant]
     Indication: PRODUCT USED FOR UNKNOWN INDICATION
     Dosage: unknown
     Route: 065
  6. VITAMIN D [Concomitant]
     Indication: PRODUCT USED FOR UNKNOWN INDICATION
     Dosage: unknown
     Route: 065
  7. VITAMIN B12 [Concomitant]
     Indication: PRODUCT USED FOR UNKNOWN INDICATION
     Dosage: unknown
     Route: 065
  8. TORSEMIDE [Concomitant]
     Indication: CARDIAC DISORDER
     Dosage: unknown
     Route: 065
  9. SERTRALINE [Concomitant]
     Indication: PRODUCT USED FOR UNKNOWN INDICATION
     Dosage: unknown
     Route: 065
  10. VITAMIN E [Concomitant]
     Indication: PRODUCT USED FOR UNKNOWN INDICATION
     Dosage: unknown
     Route: 065
  11. CRESTOR [Concomitant]
     Indication: CARDIAC DISORDER
     Dosage: unknown
     Route: 065

REACTIONS (6)
  - Syncope [Recovered/Resolved]
  - Hypotension [Recovered/Resolved]
  - Hereditary angioedema [Recovered/Resolved]
  - White blood cell count increased [Unknown]
  - Drug dose omission [Unknown]
  - Inappropriate schedule of drug administration [Not Recovered/Not Resolved]
